FAERS Safety Report 5078907-4 (Version None)
Quarter: 2006Q3

REPORT INFORMATION
  Report Type: 
  Country: None (occurrence: None)
  Receive Date: 20060814
  Receipt Date: 20060802
  Transmission Date: 20061208
  Serious: Yes (Hospitalization)
  Sender: FDA-Public Use
  Company Number: GBWYE484302AUG06

PATIENT
  Sex: Female
  Weight: 71 kg

DRUGS (9)
  1. ENBREL [Suspect]
     Indication: RHEUMATOID ARTHRITIS
     Route: 058
     Dates: start: 20050407
  2. PREDNISOLONE [Concomitant]
     Dosage: UNKNOWN
  3. NIFEDIPINE [Concomitant]
     Dosage: UNKNOWN
  4. LEVOTHYROXINE SODIUM [Concomitant]
     Dosage: UNKNOWN
  5. DICLOFENAC SODIUM [Concomitant]
     Dosage: UNKNOWN
  6. FOLIC ACID [Concomitant]
     Dosage: UNKNOWN
  7. CONJUGATED ESTROGENS/NORGESTREL [Concomitant]
     Dosage: UNKNOWN
  8. METHOTREXATE [Concomitant]
     Dosage: UNKNOWN
  9. AMITRIPTYLINE HCL [Concomitant]
     Dosage: UNKNOWN

REACTIONS (3)
  - ARTHRALGIA [None]
  - BACK PAIN [None]
  - OSTEOMYELITIS [None]
